FAERS Safety Report 4621238-4 (Version None)
Quarter: 2005Q1

REPORT INFORMATION
  Report Type: 
  Country: None (occurrence: None)
  Receive Date: 20050329
  Receipt Date: 20050317
  Transmission Date: 20050727
  Serious: Yes (Other)
  Sender: FDA-Public Use
  Company Number: AU-JNJFOC-20050304279

PATIENT
  Sex: Female

DRUGS (8)
  1. REMICADE [Suspect]
     Indication: RHEUMATOID ARTHRITIS
     Route: 042
  2. METHOTREXATE [Suspect]
     Indication: RHEUMATOID ARTHRITIS
  3. FOLIC ACID [Suspect]
     Indication: RHEUMATOID ARTHRITIS
  4. SURGAM [Suspect]
     Indication: RHEUMATOID ARTHRITIS
     Route: 049
  5. XALATAN [Concomitant]
  6. TIMOPTIC [Concomitant]
  7. PLAQUENIL [Concomitant]
  8. PREDNISOLONE [Concomitant]

REACTIONS (1)
  - LUPUS-LIKE SYNDROME [None]
